FAERS Safety Report 11213253 (Version 2)
Quarter: 2015Q3

REPORT INFORMATION
  Report Type: Spontaneous
  Country: JP (occurrence: JP)
  Receive Date: 20150623
  Receipt Date: 20150713
  Transmission Date: 20151125
  Serious: Yes (Other)
  Sender: FDA-Public Use
  Company Number: JP-GLAXOSMITHKLINE-JP2015JPN084126

PATIENT
  Sex: Female

DRUGS (1)
  1. VOTRIENT [Suspect]
     Active Substance: PAZOPANIB HYDROCHLORIDE
     Indication: FIBROMA
     Dosage: 800 MG, 1D
     Route: 048
     Dates: start: 20150428, end: 20150522

REACTIONS (4)
  - Hepatic function abnormal [Unknown]
  - Oedema [Unknown]
  - Drug effect incomplete [Unknown]
  - Fibroma [Unknown]

NARRATIVE: CASE EVENT DATE: 20150522
